FAERS Safety Report 4473235-X (Version None)
Quarter: 2004Q4

REPORT INFORMATION
  Report Type: 
  Country: None (occurrence: None)
  Receive Date: 20041008
  Receipt Date: 20040923
  Transmission Date: 20050328
  Serious: Yes (Hospitalization)
  Sender: FDA-Public Use
  Company Number: 2004IC000843

PATIENT
  Age: 66 Year
  Sex: Male

DRUGS (11)
  1. TASMAR [Suspect]
     Indication: PARKINSONISM
     Dosage: ORAL
     Route: 048
     Dates: start: 20031015
  2. MADOPARK (LEVODOPA/BENSERAZIDE HYDROCHLORIDE) [Suspect]
     Indication: PARKINSONISM
     Dosage: ORAL
     Route: 048
  3. MADOPARK QUICK (LEVODOPA/BENSERAZIDE HYDROCHLORIDE) [Suspect]
     Indication: PARKINSONISM
     Dosage: ORAL
     Route: 048
  4. SIFROL (PRAMIPEXOLE DIHYDROCHLORIDE) (1.1 MG) [Suspect]
     Indication: PARKINSONISM
     Dosage: ORAL
     Route: 048
  5. ORSTANORM (DIHYDROERGOTAMINE MESILATE) (5 MG) [Suspect]
     Dosage: 5 MG ORAL
     Route: 048
  6. EFFEXOR [Concomitant]
  7. HYOSCYAMINE SULFATE [Concomitant]
  8. BETOLVEX [Concomitant]
  9. CLARITIN [Concomitant]
  10. ASPIRIN [Concomitant]
  11. DETRUSITOL [Concomitant]

REACTIONS (3)
  - PLEURAL FIBROSIS [None]
  - PULMONARY FIBROSIS [None]
  - WEIGHT DECREASED [None]
